FAERS Safety Report 25224837 (Version 1)
Quarter: 2025Q2

REPORT INFORMATION
  Report Type: Spontaneous
  Country: FR (occurrence: FR)
  Receive Date: 20250422
  Receipt Date: 20250422
  Transmission Date: 20250716
  Serious: Yes (Hospitalization)
  Sender: SANOFI AVENTIS
  Company Number: None

PATIENT
  Age: 60 Year
  Sex: Male
  Weight: 52 kg

DRUGS (4)
  1. RIFAMPIN [Suspect]
     Active Substance: RIFAMPIN
     Indication: Pulmonary tuberculosis
     Dosage: 500 MG, QD (IN THE MORNING)
     Route: 048
     Dates: start: 20250120, end: 20250228
  2. ISONIAZID [Suspect]
     Active Substance: ISONIAZID
     Indication: Pulmonary tuberculosis
     Dosage: 150 MG, QD (IN THE MORNING)
     Route: 048
     Dates: start: 20250120, end: 20250228
  3. PYRAZINAMIDE [Suspect]
     Active Substance: PYRAZINAMIDE
     Indication: Pulmonary tuberculosis
     Dosage: 1500 MG, QD (IN THE MORNING)
     Route: 048
     Dates: start: 20250120, end: 20250228
  4. ETHAMBUTOL HYDROCHLORIDE [Suspect]
     Active Substance: ETHAMBUTOL HYDROCHLORIDE
     Indication: Pulmonary tuberculosis
     Dosage: 750 MG, QD (IN THE MORNING)
     Route: 048
     Dates: start: 20250120, end: 20250228

REACTIONS (1)
  - Henoch-Schonlein purpura [Recovering/Resolving]

NARRATIVE: CASE EVENT DATE: 20250220
